FAERS Safety Report 15999614 (Version 1)
Quarter: 2019Q1

REPORT INFORMATION
  Report Type: Spontaneous
  Country: US (occurrence: US)
  Receive Date: 20190223
  Receipt Date: 20190223
  Transmission Date: 20190418
  Serious: No
  Sender: FDA-Public Use
  Company Number: None

PATIENT
  Age: 68 Year
  Sex: Male
  Weight: 87.75 kg

DRUGS (2)
  1. IVERMECTIN. [Suspect]
     Active Substance: IVERMECTIN
     Indication: ACARODERMATITIS
     Dates: start: 20180227, end: 20180314
  2. PERRIGO PERMETHRIN CREAM [Suspect]
     Active Substance: PERMETHRIN
     Indication: ACARODERMATITIS
     Dosage: ?          QUANTITY:1 TUBE;?
     Route: 061
     Dates: start: 20180227, end: 20180323

REACTIONS (2)
  - Drug ineffective [None]
  - Rash [None]

NARRATIVE: CASE EVENT DATE: 20180227
